FAERS Safety Report 20052205 (Version 1)
Quarter: 2021Q4

REPORT INFORMATION
  Report Type: Spontaneous
  Country: PL (occurrence: PL)
  Receive Date: 20211110
  Receipt Date: 20211110
  Transmission Date: 20220303
  Serious: Yes (Death)
  Sender: FDA-Public Use
  Company Number: None

PATIENT
  Age: 63 Year
  Sex: Female
  Weight: 58 kg

DRUGS (9)
  1. DOCETAXEL [Suspect]
     Active Substance: DOCETAXEL
     Indication: HER2 positive breast cancer
     Dosage: 100 MG (IN 2ND AND 3RD CYCLE DOSE WAS REDUCED DUE TO TYPICAL ADVERSE REACTIONS IN 1ST AND 2ND CYCLE:
     Route: 042
     Dates: start: 20210618, end: 20210811
  2. CARBOPLATIN [Suspect]
     Active Substance: CARBOPLATIN
     Indication: HER2 positive breast cancer
     Dosage: 450 MG (IN 2ND AND 3RD CYCLE DOSE WAS REDUCED DUE TO TYPICAL ADVERSE REACTIONS IN 1ST AND 2ND CYCLE:
     Route: 042
     Dates: start: 20210618, end: 20210811
  3. ONDANSETRON [Concomitant]
     Active Substance: ONDANSETRON
     Indication: Prophylaxis of nausea and vomiting
     Dosage: 8 MG (ANTIEMETIC PROPHYLAXIS ON THE DAY OF CHEMOTHERAPY)
     Route: 042
     Dates: start: 20210618, end: 20210811
  4. ONDANSETRON [Concomitant]
     Active Substance: ONDANSETRON
     Indication: Breast cancer female
  5. CLEMASTINE [Concomitant]
     Active Substance: CLEMASTINE
     Indication: Breast cancer female
     Dosage: 2 MG (BEFORE DRUGS INFUSION ON THE DAY OF TCHP)
     Route: 042
     Dates: start: 20210618, end: 20210811
  6. DEXAMETHASONE [Concomitant]
     Active Substance: DEXAMETHASONE
     Indication: Chemotherapy side effect prophylaxis
     Dosage: DOSE: - 1 TABLET 8 MG THE DAY BEFORE CHEMOTHERAPY- 3 TABLETS ON THE DAY OF CHEMOTHERAPY- 2 TABLETS T
     Route: 065
     Dates: start: 20210617, end: 20210812
  7. DEXAMETHASONE [Concomitant]
     Active Substance: DEXAMETHASONE
     Indication: Breast cancer female
  8. BISORATIO [Concomitant]
     Indication: Essential hypertension
     Dosage: 5 MG
     Route: 065
  9. PEGFILGRASTIM [Concomitant]
     Active Substance: PEGFILGRASTIM
     Indication: Chemotherapy side effect prophylaxis
     Dosage: 0.6 ML (DRUG ADMINISTERED DAY AFTER ENDING TCHP INFUSION)
     Route: 058
     Dates: start: 20210618, end: 20210811

REACTIONS (1)
  - Diverticulitis [Fatal]

NARRATIVE: CASE EVENT DATE: 20210908
